FAERS Safety Report 17243822 (Version 1)
Quarter: 2020Q1

REPORT INFORMATION
  Report Type: Spontaneous
  Country: US (occurrence: US)
  Receive Date: 20200107
  Receipt Date: 20200107
  Transmission Date: 20200409
  Serious: Yes (Death)
  Sender: FDA-Public Use
  Company Number: US-ROCHE-2422051

PATIENT
  Age: 86 Year
  Sex: Male
  Weight: 81.6 kg

DRUGS (7)
  1. ACTIVASE [Suspect]
     Active Substance: ALTEPLASE
     Dosage: 1 OVER 1 HOUR
     Route: 042
     Dates: start: 20190912, end: 20190912
  2. DUONEB [Concomitant]
     Active Substance: ALBUTEROL SULFATE\IPRATROPIUM BROMIDE
     Route: 065
  3. ATIVAN [Concomitant]
     Active Substance: LORAZEPAM
  4. CARDENE [Concomitant]
     Active Substance: NICARDIPINE HYDROCHLORIDE
     Route: 065
  5. ACTIVASE [Suspect]
     Active Substance: ALTEPLASE
     Indication: CEREBROVASCULAR ACCIDENT
     Dosage: 7.34 BOLUS
     Route: 042
     Dates: start: 20190912, end: 20190912
  6. SALINE [SODIUM CHLORIDE] [Concomitant]
     Active Substance: SODIUM CHLORIDE
     Route: 042
     Dates: start: 20190912, end: 20190912
  7. ISOVUE 370 [Concomitant]
     Active Substance: IOPAMIDOL
     Route: 042
     Dates: start: 20190912, end: 20190912

REACTIONS (1)
  - Haemorrhage intracranial [Fatal]

NARRATIVE: CASE EVENT DATE: 20190912
